FAERS Safety Report 20023443 (Version 1)
Quarter: 2021Q4

REPORT INFORMATION
  Report Type: Spontaneous
  Country: GD (occurrence: GD)
  Receive Date: 20211102
  Receipt Date: 20211102
  Transmission Date: 20220303
  Serious: Yes (Other)
  Sender: FDA-Public Use
  Company Number: GD-AMNEAL PHARMACEUTICALS-2021-AMRX-04418

PATIENT
  Age: 31 Year
  Sex: Female

DRUGS (1)
  1. LIDOCAINE [Suspect]
     Active Substance: LIDOCAINE
     Indication: Anaesthesia
     Dosage: UNK
     Route: 040

REACTIONS (2)
  - Horner^s syndrome [Recovered/Resolved]
  - Loss of consciousness [Recovered/Resolved]
